FAERS Safety Report 9720160 (Version 1)
Quarter: 2013Q4

REPORT INFORMATION
  Report Type: Spontaneous
  Country: GR (occurrence: GR)
  Receive Date: 20131129
  Receipt Date: 20131129
  Transmission Date: 20140711
  Serious: Yes (Hospitalization, Other)
  Sender: FDA-Public Use
  Company Number: GR-ROCHE-1027641

PATIENT
  Age: 7 Year
  Sex: Female
  Weight: 30 kg

DRUGS (4)
  1. DORMICUM (INJ) [Suspect]
     Indication: PRODUCT USED FOR UNKNOWN INDICATION
     Dosage: 5MG ADMINISTERED (DATE/TIME NOT SPECIFIED)
     Route: 042
  2. ANEXATE [Suspect]
     Indication: PRODUCT USED FOR UNKNOWN INDICATION
     Dosage: 3 CC ADMINISTERED (DATE/TIME) NOT SPECIFIED
     Route: 042
  3. DOTAREM (GERMANY) [Suspect]
     Indication: NUCLEAR MAGNETIC RESONANCE IMAGING BRAIN
     Dosage: UNKNOWN DOSE
     Route: 042
  4. PROPOFOL [Suspect]
     Indication: PRODUCT USED FOR UNKNOWN INDICATION
     Dosage: 5CC ADMINISTERED (DATE/TIME NOT SPECIFIED)
     Route: 042

REACTIONS (4)
  - Hepatic failure [Unknown]
  - Renal failure [Unknown]
  - Pyrexia [Unknown]
  - Somnolence [Unknown]
